FAERS Safety Report 19810967 (Version 1)
Quarter: 2021Q3

REPORT INFORMATION
  Report Type: Spontaneous
  Country: US (occurrence: US)
  Receive Date: 20210910
  Receipt Date: 20210910
  Transmission Date: 20211014
  Serious: Yes (Other)
  Sender: FDA-Public Use
  Company Number: US-ASTRAZENECA-2021A716880

PATIENT
  Sex: Female

DRUGS (4)
  1. IBRANCE [Suspect]
     Active Substance: PALBOCICLIB
     Indication: BREAST CANCER FEMALE
     Dosage: 125 MG ONCE DAILY FOR 21 DAYS ON 7 DAYS OFF WITH FASLODES INJECTIONS
     Route: 048
     Dates: start: 20210829
  2. IBRANCE [Suspect]
     Active Substance: PALBOCICLIB
     Indication: BREAST CANCER FEMALE
     Dosage: 125 MG ONCE DAILY FOR 21 DAYS ON 7 DAYS OFF WITH FASLODES INJECTIONS
     Route: 048
     Dates: start: 20210801
  3. FASLODEX [Suspect]
     Active Substance: FULVESTRANT
     Dosage: UNKNOWN
     Route: 048
     Dates: start: 20210829
  4. FASLODEX [Suspect]
     Active Substance: FULVESTRANT
     Dosage: UNKNOWN
     Route: 048

REACTIONS (9)
  - Bone pain [Recovered/Resolved]
  - Muscle spasms [Recovered/Resolved]
  - Nasopharyngitis [Unknown]
  - Pyrexia [Unknown]
  - Malaise [Recovered/Resolved]
  - Pleural effusion [Recovering/Resolving]
  - White blood cell count decreased [Unknown]
  - Headache [Recovered/Resolved]
  - Bone disorder [Unknown]

NARRATIVE: CASE EVENT DATE: 20210811
